FAERS Safety Report 19846528 (Version 1)
Quarter: 2021Q3

REPORT INFORMATION
  Report Type: Spontaneous
  Country: GR (occurrence: GR)
  Receive Date: 20210917
  Receipt Date: 20210917
  Transmission Date: 20211014
  Serious: Yes (Hospitalization)
  Sender: FDA-Public Use
  Company Number: GR-MYLANLABS-2021M1062760

PATIENT
  Age: 27 Year
  Sex: Male

DRUGS (2)
  1. CARVEDILOL. [Suspect]
     Active Substance: CARVEDILOL
     Dosage: 12.5 MILLIGRAM ON DAY 4 OF THE ADMISSION  2 TIMES
     Route: 065
  2. CARVEDILOL. [Suspect]
     Active Substance: CARVEDILOL
     Indication: MYOCARDITIS
     Dosage: 6.25 MILLIGRAM,  TIMES 2 ON DAY 3 OF THE ADMISSION
     Route: 065

REACTIONS (1)
  - Brugada syndrome [Recovered/Resolved]
